FAERS Safety Report 8003450-X (Version None)
Quarter: 2011Q4

REPORT INFORMATION
  Report Type: 
  Country: None (occurrence: None)
  Receive Date: 20111222
  Receipt Date: 20111222
  Transmission Date: 20120403
  Serious: Yes (Life-Threatening, Hospitalization)
  Sender: FDA-Public Use
  Company Number: None

PATIENT
  Sex: Male
  Weight: 75 kg

DRUGS (3)
  1. TELAPRAVIR [Suspect]
     Indication: HEPATITIS C
     Dosage: 2 TABS
     Route: 048
     Dates: start: 20111117, end: 20111219
  2. RIBAVIRIN, PEGASYS [Concomitant]
     Dosage: 3 TABS
     Route: 048
  3. PEGASYS [Interacting]

REACTIONS (2)
  - RENAL FAILURE ACUTE [None]
  - DIALYSIS [None]
